FAERS Safety Report 25793379 (Version 2)
Quarter: 2025Q3

REPORT INFORMATION
  Report Type: Report from Study
  Country: US (occurrence: US)
  Receive Date: 20250911
  Receipt Date: 20250925
  Transmission Date: 20251021
  Serious: Yes (Other)
  Sender: BIOGEN
  Company Number: US-BIOGEN-2025BI01323423

PATIENT
  Age: 59 Year
  Sex: Female
  Weight: 68.04 kg

DRUGS (7)
  1. TYSABRI [Suspect]
     Active Substance: NATALIZUMAB
     Indication: Multiple sclerosis
     Route: 050
     Dates: start: 20120828, end: 20150102
  2. TYSABRI [Suspect]
     Active Substance: NATALIZUMAB
     Dosage: INFUSED OVER 1 HOUR
     Route: 050
     Dates: start: 20150923
  3. TYSABRI [Suspect]
     Active Substance: NATALIZUMAB
     Route: 050
     Dates: start: 2014, end: 20250801
  4. CYANOCOBALAMIN (VIT B-12) [Concomitant]
     Indication: Product used for unknown indication
     Dosage: CYANOCOBALAMIN (VIT B-12) 1,000 MCG/ML INJECTION SOLUTION?INJECT 1ML ONCE MONTHLY
     Route: 050
     Dates: start: 20250319
  5. ALBUTEROL SULFATE [Concomitant]
     Active Substance: ALBUTEROL SULFATE
     Indication: Product used for unknown indication
     Route: 050
  6. HYDROCORTISONE [Concomitant]
     Active Substance: HYDROCORTISONE
     Indication: Product used for unknown indication
     Route: 050
  7. KETOCONAZOLE [Concomitant]
     Active Substance: KETOCONAZOLE
     Indication: Product used for unknown indication
     Route: 050

REACTIONS (2)
  - Trigeminal neuralgia [Not Recovered/Not Resolved]
  - Blindness transient [Unknown]

NARRATIVE: CASE EVENT DATE: 20250401
